FAERS Safety Report 8264012-2 (Version None)
Quarter: 2012Q2

REPORT INFORMATION
  Report Type: 
  Country: None (occurrence: None)
  Receive Date: 20120406
  Receipt Date: 20120328
  Transmission Date: 20120825
  Serious: No
  Sender: FDA-Public Use
  Company Number: US-BIOGENIDEC-2012BI000384

PATIENT
  Age: 40 Year
  Sex: Female

DRUGS (1)
  1. TYSABRI [Suspect]
     Indication: MULTIPLE SCLEROSIS
     Route: 042
     Dates: start: 20100330

REACTIONS (5)
  - OBSTRUCTION GASTRIC [None]
  - VOMITING [None]
  - ABDOMINAL PAIN UPPER [None]
  - ULCER [None]
  - GASTRIC ULCER [None]
